FAERS Safety Report 4366298-3 (Version None)
Quarter: 2004Q2

REPORT INFORMATION
  Report Type: 
  Country: None (occurrence: None)
  Receive Date: 20040526
  Receipt Date: 20040526
  Transmission Date: 20050107
  Serious: Yes (Hospitalization)
  Sender: FDA-Public Use
  Company Number: None

PATIENT
  Sex: Male
  Weight: 79.8331 kg

DRUGS (9)
  1. CYCLOPHOSPHAMIDE [Suspect]
     Indication: BONE MARROW TRANSPLANT
     Dosage: 4800 MG QD IV
     Route: 042
     Dates: start: 20030314, end: 20030315
  2. ALLOPURINOL [Concomitant]
  3. PHENYTOIN [Concomitant]
  4. DEXAMETHASONE [Concomitant]
  5. DEXAMETHASONE [Concomitant]
  6. ONDANSETRON [Concomitant]
  7. LANSOPRAZOLE [Concomitant]
  8. CLARINEX [Concomitant]
  9. MESNA [Concomitant]

REACTIONS (6)
  - ANXIETY [None]
  - FLUSHING [None]
  - NASAL CONGESTION [None]
  - PAIN [None]
  - SKIN BURNING SENSATION [None]
  - SWOLLEN TONGUE [None]
